FAERS Safety Report 6580693-3 (Version None)
Quarter: 2010Q1

REPORT INFORMATION
  Report Type: 
  Country: None (occurrence: None)
  Receive Date: 20100212
  Receipt Date: 20100201
  Transmission Date: 20100710
  Serious: Yes (Hospitalization)
  Sender: FDA-Public Use
  Company Number: FR-PURDUE-GBR-2010-0006101

PATIENT
  Sex: Female

DRUGS (6)
  1. OXYCONTIN [Suspect]
     Indication: PAIN
     Dosage: TID
     Route: 048
     Dates: start: 20091112, end: 20091127
  2. OXYNORM [Suspect]
     Indication: PAIN
     Dosage: 1 CAPSL, UNK
     Route: 048
     Dates: start: 20091112, end: 20091121
  3. MAG 2 [Concomitant]
  4. MYOLASTAN [Concomitant]
     Dosage: UNK
     Dates: start: 20091109, end: 20091123
  5. PROFENID                           /00321701/ [Concomitant]
     Dosage: UNK
     Dates: start: 20091112, end: 20091116
  6. SOLU-MEDROL [Concomitant]
     Dosage: UNK
     Dates: start: 20091112, end: 20091119

REACTIONS (2)
  - DELIRIUM [None]
  - HALLUCINATION [None]
